FAERS Safety Report 4416249-8 (Version None)
Quarter: 2004Q3

REPORT INFORMATION
  Report Type: 
  Country: None (occurrence: None)
  Receive Date: 20040805
  Receipt Date: 20040629
  Transmission Date: 20050211
  Serious: Yes (Other)
  Sender: FDA-Public Use
  Company Number: 200416540GDDC

PATIENT
  Age: 53 Year
  Sex: Female
  Weight: 80 kg

DRUGS (2)
  1. LANTUS [Suspect]
     Indication: DIABETES MELLITUS INSULIN-DEPENDENT
     Dosage: DOSE UNIT: UNITS
     Route: 058
     Dates: start: 20030401, end: 20030701
  2. NOVORAPID [Concomitant]
     Indication: DIABETES MELLITUS
     Dosage: DOSE UNIT: UNITS
     Route: 058

REACTIONS (1)
  - DEPRESSION [None]
